FAERS Safety Report 5724136-8 (Version None)
Quarter: 2008Q2

REPORT INFORMATION
  Report Type: 
  Country: None (occurrence: None)
  Receive Date: 20080430
  Receipt Date: 20080421
  Transmission Date: 20081010
  Serious: Yes (Other)
  Sender: FDA-Public Use
  Company Number: US-BOEHRINGER INGELHEIM GMBH, GERMANY-2008-DE-02374GD

PATIENT

DRUGS (3)
  1. RANITIDINE [Suspect]
  2. LANSOPRAZOLE [Suspect]
  3. ROXATIDINE ACETATE HCL [Suspect]

REACTIONS (2)
  - CLOSTRIDIUM DIFFICILE COLITIS [None]
  - PNEUMONIA [None]
